FAERS Safety Report 10399612 (Version 10)
Quarter: 2016Q1

REPORT INFORMATION
  Report Type: Spontaneous
  Country: US (occurrence: US)
  Receive Date: 20140821
  Receipt Date: 20160211
  Transmission Date: 20160525
  Serious: Yes (Life-Threatening, Hospitalization, Disabling, Other)
  Sender: FDA-Public Use
  Company Number: US-ASTRAZENECA-2014SE60851

PATIENT
  Age: 36 Year
  Sex: Female
  Weight: 74.8 kg

DRUGS (52)
  1. METHOTREXATE [Suspect]
     Active Substance: METHOTREXATE
     Indication: RHEUMATOID ARTHRITIS
     Route: 030
  2. METHOTREXATE [Suspect]
     Active Substance: METHOTREXATE
     Indication: RHEUMATOID ARTHRITIS
     Route: 048
     Dates: start: 1998
  3. FOLIC ACID. [Concomitant]
     Active Substance: FOLIC ACID
     Indication: RHEUMATOID ARTHRITIS
     Route: 048
  4. CALNIT [Concomitant]
     Indication: OSTEOPENIA
  5. D-PENICILLAMINE [Concomitant]
     Active Substance: PENICILLAMINE
  6. CYCLOPHOSPHAMIDE. [Concomitant]
     Active Substance: CYCLOPHOSPHAMIDE
  7. ACYCLOVIR. [Concomitant]
     Active Substance: ACYCLOVIR
     Route: 042
  8. POTASSIUM [Concomitant]
     Active Substance: POTASSIUM
     Dosage: DAILY
  9. PLAQUENIL SULFATE [Concomitant]
     Active Substance: HYDROXYCHLOROQUINE SULFATE
     Route: 048
  10. NEXIUM [Suspect]
     Active Substance: ESOMEPRAZOLE MAGNESIUM
     Indication: GASTROOESOPHAGEAL REFLUX DISEASE
     Route: 048
     Dates: start: 2001, end: 2007
  11. NEXIUM [Suspect]
     Active Substance: ESOMEPRAZOLE MAGNESIUM
     Indication: GASTROOESOPHAGEAL REFLUX DISEASE
     Route: 048
     Dates: start: 2001, end: 2007
  12. NEXIUM [Suspect]
     Active Substance: ESOMEPRAZOLE MAGNESIUM
     Indication: GASTROOESOPHAGEAL REFLUX DISEASE
     Route: 048
     Dates: start: 2003, end: 2011
  13. NEXIUM [Suspect]
     Active Substance: ESOMEPRAZOLE MAGNESIUM
     Indication: GASTROOESOPHAGEAL REFLUX DISEASE
     Route: 048
     Dates: end: 201203
  14. PRILOSEC [Suspect]
     Active Substance: OMEPRAZOLE MAGNESIUM
     Indication: GASTROOESOPHAGEAL REFLUX DISEASE
     Dosage: 40 MG, DAILY (GENERIC)
     Route: 065
     Dates: start: 2010
  15. LORTAB [Concomitant]
     Active Substance: ACETAMINOPHEN\HYDROCODONE BITARTRATE
     Indication: PAIN
     Dosage: 10/325MG 2 TABLETS DAILY
     Route: 048
     Dates: start: 2010
  16. HYDROXYCHLOROQUINE [Concomitant]
     Active Substance: HYDROXYCHLOROQUINE
  17. ETANERCEPT [Concomitant]
     Active Substance: ETANERCEPT
  18. CALCIUM [Concomitant]
     Active Substance: CALCIUM
     Dosage: DAILY
  19. NYSTATIN. [Concomitant]
     Active Substance: NYSTATIN
     Route: 061
  20. NEXIUM [Suspect]
     Active Substance: ESOMEPRAZOLE MAGNESIUM
     Indication: GASTROOESOPHAGEAL REFLUX DISEASE
     Route: 048
     Dates: start: 2002
  21. NEXIUM [Suspect]
     Active Substance: ESOMEPRAZOLE MAGNESIUM
     Indication: GASTROOESOPHAGEAL REFLUX DISEASE
     Route: 048
     Dates: start: 2003, end: 2011
  22. LISINOPRIL. [Suspect]
     Active Substance: LISINOPRIL
     Route: 048
  23. NAPROXEN. [Concomitant]
     Active Substance: NAPROXEN
     Indication: RHEUMATOID ARTHRITIS
     Route: 048
     Dates: start: 2009
  24. ELAVIL [Concomitant]
     Active Substance: AMITRIPTYLINE HYDROCHLORIDE
     Route: 048
  25. DETROL [Concomitant]
     Active Substance: TOLTERODINE TARTRATE
     Route: 048
  26. NEXIUM [Suspect]
     Active Substance: ESOMEPRAZOLE MAGNESIUM
     Indication: GASTROOESOPHAGEAL REFLUX DISEASE
     Route: 048
     Dates: start: 2002
  27. RECLAST [Concomitant]
     Active Substance: ZOLEDRONIC ACID
     Indication: RHEUMATOID ARTHRITIS
     Dosage: 5 MG/100 ML YEARLY
     Route: 042
  28. LORTAB [Concomitant]
     Active Substance: ACETAMINOPHEN\HYDROCODONE BITARTRATE
     Indication: PAIN
     Dosage: 10/500 MG 1 TABLET EVERY 12 HOURS AS REQUIRED
     Route: 048
  29. COLACE [Concomitant]
     Active Substance: DOCUSATE SODIUM
  30. LOVENOX [Concomitant]
     Active Substance: ENOXAPARIN SODIUM
  31. VITAMIN D3 [Concomitant]
     Active Substance: CHOLECALCIFEROL
     Dosage: DAILY
     Route: 048
  32. PRILOSEC [Suspect]
     Active Substance: OMEPRAZOLE MAGNESIUM
     Indication: GASTROOESOPHAGEAL REFLUX DISEASE
     Route: 048
     Dates: start: 2014
  33. PREDNISONE. [Concomitant]
     Active Substance: PREDNISONE
     Indication: RHEUMATOID ARTHRITIS
     Route: 048
     Dates: start: 1998
  34. AZATHIOPRINE. [Concomitant]
     Active Substance: AZATHIOPRINE
  35. VITAMIN D [Concomitant]
     Active Substance: CHOLECALCIFEROL
     Dosage: DAILY
  36. PROMETHAZINE [Concomitant]
     Active Substance: PROMETHAZINE\PROMETHAZINE HYDROCHLORIDE
     Indication: NAUSEA
     Route: 048
  37. NEXIUM [Suspect]
     Active Substance: ESOMEPRAZOLE MAGNESIUM
     Indication: GASTROOESOPHAGEAL REFLUX DISEASE
     Route: 048
     Dates: end: 201203
  38. PRILOSEC [Suspect]
     Active Substance: OMEPRAZOLE MAGNESIUM
     Indication: GASTROOESOPHAGEAL REFLUX DISEASE
     Route: 048
     Dates: start: 2014
  39. PRILOSEC [Suspect]
     Active Substance: OMEPRAZOLE MAGNESIUM
     Indication: GASTROOESOPHAGEAL REFLUX DISEASE
     Dosage: 40 MG, DAILY (GENERIC)
     Route: 065
     Dates: start: 2010
  40. PREDNISONE. [Concomitant]
     Active Substance: PREDNISONE
     Indication: RHEUMATOID ARTHRITIS
     Route: 048
  41. NAPROXEN. [Concomitant]
     Active Substance: NAPROXEN
     Indication: RHEUMATOID ARTHRITIS
     Route: 048
     Dates: start: 2009
  42. HUMIRA [Concomitant]
     Active Substance: ADALIMUMAB
     Indication: RHEUMATOID ARTHRITIS
     Route: 058
  43. CYCLOSPORIN A [Concomitant]
     Active Substance: CYCLOSPORINE
  44. VANCOMYCIN [Concomitant]
     Active Substance: VANCOMYCIN
     Route: 042
  45. ORENCIA [Concomitant]
     Active Substance: ABATACEPT
     Dosage: 125 MG/ML WEEKLY
     Route: 057
  46. AMBIEN [Concomitant]
     Active Substance: ZOLPIDEM TARTRATE
     Route: 048
  47. METHOTREXATE [Suspect]
     Active Substance: METHOTREXATE
     Indication: RHEUMATOID ARTHRITIS
     Dosage: EIGHT TABLETS ON SUNDAY
     Route: 048
  48. SULFASALAZINE. [Concomitant]
     Active Substance: SULFASALAZINE
  49. LEFLUNOMIDE. [Concomitant]
     Active Substance: LEFLUNOMIDE
  50. CHLORAMBUCIL [Concomitant]
     Active Substance: CHLORAMBUCIL
  51. ROCEPHIN [Concomitant]
     Active Substance: CEFTRIAXONE SODIUM
     Dosage: EVERY 12 HOURS
  52. NAPROSYN [Concomitant]
     Active Substance: NAPROXEN

REACTIONS (49)
  - Osteonecrosis [Unknown]
  - Nausea [Unknown]
  - Insomnia [Unknown]
  - Weight increased [Unknown]
  - Malaise [Unknown]
  - Hepatic cirrhosis [Unknown]
  - Neuropathy peripheral [Unknown]
  - Fall [Unknown]
  - Back pain [Unknown]
  - Arthropathy [Unknown]
  - Arthralgia [Unknown]
  - Gastrointestinal pain [Unknown]
  - Musculoskeletal pain [Unknown]
  - Joint stiffness [Unknown]
  - Cough [Unknown]
  - Spinal fracture [Unknown]
  - Abdominal distension [Unknown]
  - Pancreatitis [Unknown]
  - Eye inflammation [Unknown]
  - Alopecia [Unknown]
  - Microcytic anaemia [Unknown]
  - Vomiting [Unknown]
  - Ear congestion [Unknown]
  - Muscle spasms [Unknown]
  - Rash erythematous [Recovered/Resolved]
  - Spinal compression fracture [Unknown]
  - Dysstasia [Not Recovered/Not Resolved]
  - Muscular weakness [Unknown]
  - Joint instability [Unknown]
  - Synovitis [Unknown]
  - Nasal ulcer [Unknown]
  - Rheumatoid arthritis [Not Recovered/Not Resolved]
  - Gallbladder disorder [Unknown]
  - Depression [Unknown]
  - Furuncle [Unknown]
  - Influenza like illness [Unknown]
  - Systemic lupus erythematosus [Unknown]
  - Laryngitis [Not Recovered/Not Resolved]
  - Osteopenia [Unknown]
  - Abasia [Not Recovered/Not Resolved]
  - Meniscus injury [Unknown]
  - Temperature intolerance [Unknown]
  - Peripheral swelling [Unknown]
  - Urinary incontinence [Unknown]
  - Bone density decreased [Not Recovered/Not Resolved]
  - Osteoporosis [Not Recovered/Not Resolved]
  - Jaundice cholestatic [Unknown]
  - Bladder spasm [Unknown]
  - Intentional product misuse [Unknown]

NARRATIVE: CASE EVENT DATE: 2005
